FAERS Safety Report 6965582-4 (Version None)
Quarter: 2010Q3

REPORT INFORMATION
  Report Type: 
  Country: None (occurrence: None)
  Receive Date: 20100903
  Receipt Date: 20100825
  Transmission Date: 20110219
  Serious: Yes (Hospitalization)
  Sender: FDA-Public Use
  Company Number: US-GENZYME-CLOF-1000812

PATIENT
  Sex: Male
  Weight: 74 kg

DRUGS (2)
  1. CLOFARABINE [Suspect]
     Indication: ACUTE MYELOID LEUKAEMIA
  2. ARA-C [Suspect]
     Indication: ACUTE MYELOID LEUKAEMIA

REACTIONS (7)
  - ATRIAL FIBRILLATION [None]
  - ESCHERICHIA BACTERAEMIA [None]
  - HYPOTENSION [None]
  - PULMONARY VASCULAR RESISTANCE ABNORMALITY [None]
  - RENAL FAILURE ACUTE [None]
  - RESPIRATORY FAILURE [None]
  - SEPSIS [None]
